FAERS Safety Report 16487537 (Version 1)
Quarter: 2019Q2

REPORT INFORMATION
  Report Type: Spontaneous
  Country: US (occurrence: US)
  Receive Date: 20190627
  Receipt Date: 20190627
  Transmission Date: 20190711
  Serious: Yes (Hospitalization, Other)
  Sender: FDA-Public Use
  Company Number: US-BRISTOL-MYERS SQUIBB COMPANY-BMS-2019-062705

PATIENT
  Sex: Male
  Weight: 127.01 kg

DRUGS (3)
  1. SOTALOL HYDROCHLORIDE. [Concomitant]
     Active Substance: SOTALOL HYDROCHLORIDE
     Indication: ARRHYTHMIA
     Dosage: UNK
     Route: 065
     Dates: start: 20190304
  2. TIKOSYN [Concomitant]
     Active Substance: DOFETILIDE
     Indication: ARRHYTHMIA
     Dosage: 500 MILLIGRAM, BID
     Route: 048
     Dates: start: 20190312
  3. ELIQUIS [Suspect]
     Active Substance: APIXABAN
     Indication: PRODUCT USED FOR UNKNOWN INDICATION
     Dosage: UNK
     Route: 065

REACTIONS (4)
  - Blood count abnormal [Recovered/Resolved]
  - Diverticulum [Unknown]
  - Atrial fibrillation [Unknown]
  - Gastrointestinal haemorrhage [Not Recovered/Not Resolved]
